FAERS Safety Report 9928542 (Version 1)
Quarter: 2014Q1

REPORT INFORMATION
  Report Type: Spontaneous
  Country: US (occurrence: None)
  Receive Date: 20140225
  Receipt Date: 20140225
  Transmission Date: 20141002
  Serious: Yes (Other)
  Sender: FDA-Public Use
  Company Number: 2014AP001423

PATIENT
  Age: 58 Year
  Sex: Female

DRUGS (1)
  1. USA LEVOFLOXACIN FCT [Suspect]
     Indication: EVIDENCE BASED TREATMENT

REACTIONS (2)
  - Eosinophilic pneumonia [None]
  - Rash erythematous [None]
